FAERS Safety Report 6161113-X (Version None)
Quarter: 2009Q2

REPORT INFORMATION
  Report Type: 
  Country: None (occurrence: None)
  Receive Date: 20090417
  Receipt Date: 20090417
  Transmission Date: 20091009
  Serious: No
  Sender: FDA-Public Use
  Company Number: None

PATIENT
  Age: 63 Year
  Sex: Female
  Weight: 85.2762 kg

DRUGS (3)
  1. LEVAQUIN [Suspect]
     Indication: SINUSITIS
     Dosage: 1 PER DAY 14 DAYS BY MOUTH
     Route: 048
     Dates: start: 20090202, end: 20090206
  2. PREDNISONE TAB [Suspect]
     Dates: start: 20090305, end: 20090318
  3. STEROID SHOT [Suspect]

REACTIONS (8)
  - DYSPHAGIA [None]
  - EXERCISE TOLERANCE DECREASED [None]
  - GAIT DISTURBANCE [None]
  - MUSCLE TIGHTNESS [None]
  - MYALGIA [None]
  - TENDON DISORDER [None]
  - TENDON PAIN [None]
  - TREMOR [None]
